FAERS Safety Report 14471382 (Version 1)
Quarter: 2018Q1

REPORT INFORMATION
  Report Type: Spontaneous
  Country: FR (occurrence: FR)
  Receive Date: 20180131
  Receipt Date: 20180131
  Transmission Date: 20180509
  Serious: Yes (Hospitalization)
  Sender: FDA-Public Use
  Company Number: FR-TEVA-2018-FR-849586

PATIENT
  Age: 70 Year
  Sex: Male
  Weight: 85 kg

DRUGS (11)
  1. DOLIPRANE 1000 MG, COMPRIM? [Concomitant]
     Indication: PAIN
     Route: 048
  2. SPECIAFOLDINE 5 MG, COMPRIM? [Concomitant]
     Active Substance: FOLIC ACID
     Route: 048
     Dates: end: 20170704
  3. XARELTO 10 MG, COMPRIM? PELLICUL? [Concomitant]
     Route: 048
  4. LASILIX SPECIAL 500 MG, COMPRIM? S?CABLE [Interacting]
     Active Substance: FUROSEMIDE
     Indication: HYPERTENSION
     Route: 048
     Dates: end: 20170705
  5. MONOPROST [Concomitant]
     Active Substance: LATANOPROST
     Indication: GLAUCOMA
     Route: 047
  6. SPIRONOLACTONE. [Suspect]
     Active Substance: SPIRONOLACTONE
     Indication: HYPERTENSION
     Route: 048
     Dates: end: 20170620
  7. PRAVASTATINE SODIQUE [Concomitant]
     Active Substance: PRAVASTATIN SODIUM
     Indication: DYSLIPIDAEMIA
     Route: 048
  8. BISOPROLOL [Concomitant]
     Active Substance: BISOPROLOL
     Indication: HYPERTENSION
     Route: 048
     Dates: end: 20170620
  9. DIFFU K, G?LULE [Concomitant]
     Active Substance: POTASSIUM CHLORIDE
     Indication: HYPOKALAEMIA
     Route: 048
     Dates: end: 20170619
  10. INEXIUM 40 MG, COMPRIM? GASTRO-R?SISTANT [Concomitant]
     Active Substance: ESOMEPRAZOLE
     Indication: GASTRITIS
     Route: 048
     Dates: end: 20170621
  11. FORLAX 10 G, POUDRE POUR SOLUTION BUVABLE EN SACHET-DOSE [Concomitant]
     Indication: CONSTIPATION
     Route: 048
     Dates: end: 20170619

REACTIONS (2)
  - Drug interaction [Recovered/Resolved]
  - Acute kidney injury [Recovered/Resolved]

NARRATIVE: CASE EVENT DATE: 20170619
